FAERS Safety Report 12689958 (Version 11)
Quarter: 2023Q1

REPORT INFORMATION
  Report Type: Report from Study
  Country: BE (occurrence: BE)
  Receive Date: 20160826
  Receipt Date: 20230209
  Transmission Date: 20230417
  Serious: Yes (Hospitalization)
  Sender: FDA-Public Use
  Company Number: BE-SA-2015SA222655

PATIENT
  Age: 37 Year
  Sex: Female
  Weight: 54 kg

DRUGS (22)
  1. ALEMTUZUMAB [Suspect]
     Active Substance: ALEMTUZUMAB
     Indication: Relapsing multiple sclerosis
     Dosage: 12 MG,QD
     Route: 041
     Dates: start: 20151214, end: 20151218
  2. ALEMTUZUMAB [Suspect]
     Active Substance: ALEMTUZUMAB
     Dosage: 12 MG, QD
     Route: 041
     Dates: start: 20171218, end: 20171220
  3. TAMSULOSIN [Concomitant]
     Active Substance: TAMSULOSIN
     Indication: Prophylaxis
     Dosage: .4 MG,QD
     Route: 048
     Dates: start: 20151012
  4. TAMSULOSIN [Concomitant]
     Active Substance: TAMSULOSIN
     Indication: Neurogenic bladder
  5. MESTINON [Concomitant]
     Active Substance: PYRIDOSTIGMINE BROMIDE
     Indication: Prophylaxis
     Dosage: 30 MG,QD
     Route: 048
     Dates: start: 20151012
  6. ASPIRIN [Concomitant]
     Active Substance: ASPIRIN
     Indication: Prophylaxis
     Dosage: 80 MG,QD
     Route: 048
     Dates: start: 2015, end: 20151214
  7. ZANTAC [Concomitant]
     Active Substance: RANITIDINE HYDROCHLORIDE
     Indication: Prophylaxis
     Dosage: 150 MG,QD
     Route: 048
     Dates: start: 20151214, end: 20151221
  8. OMEPRAZOLE [Concomitant]
     Active Substance: OMEPRAZOLE
     Indication: Prophylaxis
     Dosage: 20 MG,QD
     Route: 048
     Dates: start: 20151214, end: 20151221
  9. ACYCLOVIR [Concomitant]
     Active Substance: ACYCLOVIR
     Indication: Prophylaxis
     Dosage: 400 MG,QD
     Route: 048
     Dates: start: 20151214, end: 201601
  10. ACETAMINOPHEN [Concomitant]
     Active Substance: ACETAMINOPHEN
     Dosage: 1 G,QD
     Route: 042
     Dates: start: 20151218, end: 20151218
  11. SOLU-MEDROL [Concomitant]
     Active Substance: METHYLPREDNISOLONE SODIUM SUCCINATE
     Indication: Prophylaxis
     Dosage: 500 MG,QD
     Route: 042
     Dates: start: 20151214, end: 20151214
  12. SOLU-MEDROL [Concomitant]
     Active Substance: METHYLPREDNISOLONE SODIUM SUCCINATE
     Indication: Multiple sclerosis
     Dosage: 250 MG,QD
     Route: 042
     Dates: start: 20151215, end: 20151215
  13. SOLU-MEDROL [Concomitant]
     Active Substance: METHYLPREDNISOLONE SODIUM SUCCINATE
     Dosage: 125 MG,QD
     Route: 042
     Dates: start: 20151216, end: 20151216
  14. SOLU-MEDROL [Concomitant]
     Active Substance: METHYLPREDNISOLONE SODIUM SUCCINATE
     Dosage: 500 MG,QD
     Route: 042
     Dates: start: 20151217, end: 20151217
  15. SOLU-MEDROL [Concomitant]
     Active Substance: METHYLPREDNISOLONE SODIUM SUCCINATE
     Dosage: 125 MG,QD
     Route: 042
     Dates: start: 20151218, end: 20151218
  16. SOLU-MEDROL [Concomitant]
     Active Substance: METHYLPREDNISOLONE SODIUM SUCCINATE
     Dosage: 1 G,QD
     Route: 042
     Dates: start: 20160502, end: 20160506
  17. MAGNESIUM SULFATE [Concomitant]
     Active Substance: MAGNESIUM SULFATE
     Indication: Prophylaxis
     Dosage: 2 G,QD
     Route: 042
     Dates: start: 20151214, end: 20151219
  18. KCL [Concomitant]
     Active Substance: POTASSIUM CHLORIDE
     Indication: Prophylaxis
     Dosage: 20 MEQ,QD
     Route: 042
     Dates: start: 20151214, end: 20151219
  19. ERGOCALCIFEROL [Concomitant]
     Active Substance: ERGOCALCIFEROL
     Indication: Prophylaxis
     Dosage: 25 UG,QD
     Route: 048
     Dates: start: 20150418
  20. ERGOCALCIFEROL [Concomitant]
     Active Substance: ERGOCALCIFEROL
     Indication: Vitamin D decreased
  21. CETIRIZINE [Concomitant]
     Active Substance: CETIRIZINE HYDROCHLORIDE
     Indication: Prophylaxis
     Dosage: 10 MG,QD
     Route: 048
     Dates: start: 20151214, end: 20151221
  22. TRAZODONE [Concomitant]
     Active Substance: TRAZODONE HYDROCHLORIDE
     Indication: Multiple sclerosis
     Dosage: 100 MG,QD
     Route: 048
     Dates: start: 20160415

REACTIONS (10)
  - Urosepsis [Recovered/Resolved]
  - Feeling cold [Recovered/Resolved]
  - Headache [Recovered/Resolved]
  - Hypersensitivity [Recovered/Resolved]
  - Diarrhoea [Recovered/Resolved]
  - Nasal congestion [Recovered/Resolved]
  - Intermenstrual bleeding [Recovered/Resolved]
  - Rash [Recovered/Resolved]
  - Tachycardia [Not Recovered/Not Resolved]
  - Rash [Recovered/Resolved]

NARRATIVE: CASE EVENT DATE: 20151214
